FAERS Safety Report 24411816 (Version 1)
Quarter: 2024Q4

REPORT INFORMATION
  Report Type: Report from Study
  Country: US (occurrence: US)
  Receive Date: 20241008
  Receipt Date: 20241008
  Transmission Date: 20250114
  Serious: No
  Sender: DR REDDYS
  Company Number: US-DRL-USA-CLI/USA/24/0014521

PATIENT
  Age: 47 Year
  Sex: Female
  Weight: 64.5 kg

DRUGS (2)
  1. JAVYGTOR [Suspect]
     Active Substance: SAPROPTERIN DIHYDROCHLORIDE
     Indication: Phenylketonuria
     Dosage: THREE 100MG TABLETS ALONG WITH TWO 500 MG POWDER PACKET IN 4 TO 8 OUNCES OF WATER
     Route: 048
  2. JAVYGTOR [Suspect]
     Active Substance: SAPROPTERIN DIHYDROCHLORIDE
     Indication: Phenylketonuria
     Dosage: THREE 100MG TABLETS ALONG WITH TWO 500 MG POWDER PACKET IN 4 TO 8 OUNCES OF WATER
     Route: 048

REACTIONS (1)
  - Iron deficiency [Unknown]
